FAERS Safety Report 4744202-3 (Version None)
Quarter: 2005Q3

REPORT INFORMATION
  Report Type: 
  Country: None (occurrence: None)
  Receive Date: 20050812
  Receipt Date: 20050225
  Transmission Date: 20060218
  Serious: Yes (Other)
  Sender: FDA-Public Use
  Company Number: PHEH2005US02527

PATIENT
  Sex: Male

DRUGS (1)
  1. ZOMETA [Suspect]
     Dosage: 4MG EVERY MONTH

REACTIONS (4)
  - DRY SOCKET [None]
  - IMPAIRED HEALING [None]
  - TOOTH DISORDER [None]
  - TOOTH EXTRACTION [None]
